FAERS Safety Report 21249342 (Version 1)
Quarter: 2022Q3

REPORT INFORMATION
  Report Type: Spontaneous
  Country: US (occurrence: US)
  Receive Date: 20220824
  Receipt Date: 20220824
  Transmission Date: 20221026
  Serious: Yes (Other)
  Sender: FDA-Public Use
  Company Number: US-SA-SAC20220819000982

PATIENT
  Age: 40 Year
  Sex: Female

DRUGS (1)
  1. ZANTAC [Suspect]
     Active Substance: RANITIDINE HYDROCHLORIDE
     Dosage: 150 MG FREQUENCY: OTHER
     Dates: start: 198001, end: 202001

REACTIONS (3)
  - Breast cancer female [Unknown]
  - Papilloedema [Unknown]
  - Mass [Unknown]

NARRATIVE: CASE EVENT DATE: 20070101
